FAERS Safety Report 19673711 (Version 1)
Quarter: 2021Q3

REPORT INFORMATION
  Report Type: Spontaneous
  Country: US (occurrence: US)
  Receive Date: 20210807
  Receipt Date: 20210807
  Transmission Date: 20211014
  Serious: Yes (Life-Threatening)
  Sender: FDA-Public Use
  Company Number: None

PATIENT
  Age: 67 Year
  Sex: Female
  Weight: 45 kg

DRUGS (7)
  1. VIT D [Concomitant]
     Active Substance: VITAMIN D NOS
  2. ACTEMRA [Suspect]
     Active Substance: TOCILIZUMAB
     Indication: RHEUMATOID ARTHRITIS
     Dosage: ?          OTHER FREQUENCY:1 MONTHLY;?
     Route: 042
     Dates: start: 20210520, end: 20210715
  3. PAROXETINE. [Concomitant]
     Active Substance: PAROXETINE
  4. PREDNISONE. [Concomitant]
     Active Substance: PREDNISONE
  5. BUT D 50,000 IU D2 (ERGO) CAPS [Concomitant]
     Active Substance: ERGOCALCIFEROL
  6. CLONAZAPAM [Concomitant]
     Active Substance: CLONAZEPAM
  7. .81 BABY ASPIRIN [Concomitant]

REACTIONS (4)
  - Feeling abnormal [None]
  - Infusion related reaction [None]
  - Pruritus [None]
  - Dyspnoea [None]

NARRATIVE: CASE EVENT DATE: 20210715
